FAERS Safety Report 9371881 (Version 1)
Quarter: 2013Q2

REPORT INFORMATION
  Report Type: Report from Study
  Country: US (occurrence: US)
  Receive Date: 20130627
  Receipt Date: 20130627
  Transmission Date: 20140414
  Serious: Yes (Other)
  Sender: FDA-Public Use
  Company Number: US-MYLANLABS-2012S1009501

PATIENT
  Age: 62 Year
  Sex: Male

DRUGS (10)
  1. CLOZAPINE TABLETS [Suspect]
     Indication: PSYCHOTIC DISORDER
     Dosage: 100MG PO Q AM AND 300MG PO Q HS
     Route: 048
     Dates: end: 20120809
  2. CLOZAPINE TABLETS [Suspect]
     Indication: PSYCHOTIC DISORDER
     Dosage: 100MG PO Q AM AND 300MG PO Q HS
     Route: 048
     Dates: end: 20120809
  3. LITHIUM [Concomitant]
     Indication: PSYCHOTIC DISORDER
     Dosage: 300MG Q AM, 600MG Q HS
     Route: 048
  4. COGENTIN [Concomitant]
     Route: 048
  5. PAXIL [Concomitant]
     Indication: DEPRESSION
     Route: 048
  6. ARICEPT [Concomitant]
     Indication: AMNESIA
     Route: 048
  7. NAMENDA [Concomitant]
     Indication: DEMENTIA
     Route: 048
  8. DITROPAN XL [Concomitant]
     Indication: HYPERTONIC BLADDER
     Route: 048
  9. SENOKOT [Concomitant]
     Indication: CONSTIPATION
     Route: 048
  10. KLONOPIN [Concomitant]
     Indication: PANIC ATTACK
     Route: 048

REACTIONS (2)
  - Granulocytopenia [Not Recovered/Not Resolved]
  - Leukopenia [Not Recovered/Not Resolved]
